FAERS Safety Report 9837391 (Version 1)
Quarter: 2014Q1

REPORT INFORMATION
  Report Type: Spontaneous
  Country: US (occurrence: US)
  Receive Date: 20140123
  Receipt Date: 20140123
  Transmission Date: 20141002
  Serious: Yes (Other)
  Sender: FDA-Public Use
  Company Number: US-MYLANLABS-2013S1021354

PATIENT
  Age: 27 Month
  Sex: Male

DRUGS (6)
  1. ZONISAMIDE [Suspect]
     Indication: PRODUCT USED FOR UNKNOWN INDICATION
  2. SABRIL [Suspect]
     Indication: INFANTILE SPASMS
     Route: 048
     Dates: start: 20120920
  3. SABRIL [Suspect]
     Indication: INFANTILE SPASMS
     Route: 048
  4. ONFI [Concomitant]
  5. KEPPRA [Concomitant]
  6. TOPAMAX [Concomitant]

REACTIONS (2)
  - Convulsion [Unknown]
  - Rash [Unknown]
